FAERS Safety Report 13520102 (Version 2)
Quarter: 2017Q2

REPORT INFORMATION
  Report Type: Spontaneous
  Country: US (occurrence: US)
  Receive Date: 20170506
  Receipt Date: 20170625
  Transmission Date: 20170830
  Serious: Yes (Hospitalization)
  Sender: FDA-Public Use
  Company Number: US-FRESENIUS MEDICAL CARE RENAL THERAPIES GROUP-FMC-1703-000424

PATIENT
  Sex: Male
  Weight: 89 kg

DRUGS (13)
  1. ASPRIN [Concomitant]
     Active Substance: ASPIRIN
     Dates: start: 20170301
  2. CARISOPRODOL. [Concomitant]
     Active Substance: CARISOPRODOL
     Dates: start: 20170304
  3. ACETAMINOPHEN. [Concomitant]
     Active Substance: ACETAMINOPHEN
     Dates: start: 20170303
  4. EPOETIN ALFA [Concomitant]
     Active Substance: ERYTHROPOIETIN
     Dosage: 8700 UNITS/0.435 ML
     Dates: start: 20170306
  5. LOPRESSOR [Concomitant]
     Active Substance: METOPROLOL TARTRATE
     Dates: start: 20170304
  6. ATORVASTATIN [Concomitant]
     Active Substance: ATORVASTATIN
     Dates: start: 20161213
  7. CALCIUM ACETATE. [Concomitant]
     Active Substance: CALCIUM ACETATE
  8. PLAVIX [Concomitant]
     Active Substance: CLOPIDOGREL BISULFATE
     Dates: start: 20170310
  9. DELFLEX WITH DEXTROSE 1.5% LOW MAGNESIUM LOW CALCIUM [Suspect]
     Active Substance: CALCIUM CHLORIDE\DEXTROSE\MAGNESIUM CHLORIDE\SODIUM CHLORIDE\SODIUM LACTATE
     Indication: END STAGE RENAL DISEASE
     Route: 033
  10. CALCITRIOL. [Concomitant]
     Active Substance: CALCITRIOL
     Dates: start: 20170310
  11. DELFLEX WITH DEXTROSE 2.5% LOW MAGNESIUM LOW CALCIUM [Suspect]
     Active Substance: CALCIUM CHLORIDE\DEXTROSE\MAGNESIUM CHLORIDE\SODIUM CHLORIDE\SODIUM LACTATE
     Indication: END STAGE RENAL DISEASE
     Route: 033
  12. CARAFATE [Concomitant]
     Active Substance: SUCRALFATE
  13. SOMA [Concomitant]
     Active Substance: CARISOPRODOL

REACTIONS (2)
  - Peritonitis bacterial [Recovered/Resolved]
  - Abdominal pain [Recovered/Resolved]
